APPROVED DRUG PRODUCT: DIMETANE
Active Ingredient: BROMPHENIRAMINE MALEATE
Strength: 8MG
Dosage Form/Route: TABLET, EXTENDED RELEASE;ORAL
Application: N010799 | Product #010
Applicant: WYETH CONSUMER HEALTHCARE
Approved: Jun 10, 1983 | RLD: No | RS: No | Type: DISCN